FAERS Safety Report 5919992-4 (Version None)
Quarter: 2008Q4

REPORT INFORMATION
  Report Type: 
  Country: None (occurrence: None)
  Receive Date: 20081014
  Receipt Date: 20080929
  Transmission Date: 20090506
  Serious: Yes (Other)
  Sender: FDA-Public Use
  Company Number: JPI-P-004892

PATIENT
  Age: 30 Year
  Sex: Male
  Weight: 118.3888 kg

DRUGS (4)
  1. XYREM [Suspect]
     Indication: NARCOLEPSY
     Dosage: 4.5 GM (2.25 GM, 2 IN 1 D), ORAL
     Route: 048
     Dates: start: 20080905, end: 20080927
  2. ESOMEPRAZOLE MAGNESIUM [Concomitant]
  3. AMLODIPINE (AMLODIPINE) [Concomitant]
  4. PROVIGIL [Concomitant]

REACTIONS (4)
  - CONVULSION [None]
  - DISORIENTATION [None]
  - MIDDLE INSOMNIA [None]
  - VOMITING [None]
